FAERS Safety Report 12585489 (Version 1)
Quarter: 2016Q3

REPORT INFORMATION
  Report Type: Spontaneous
  Country: IT (occurrence: IT)
  Receive Date: 20160724
  Receipt Date: 20160724
  Transmission Date: 20161109
  Serious: Yes (Life-Threatening, Hospitalization, Other)
  Sender: FDA-Public Use
  Company Number: IT-ELI_LILLY_AND_COMPANY-IT201607005769

PATIENT
  Age: 26 Year
  Sex: Female

DRUGS (7)
  1. NOVORAPID [Suspect]
     Active Substance: INSULIN ASPART
     Indication: GESTATIONAL DIABETES
     Dosage: 10 IU, QD
     Route: 058
     Dates: start: 20160410, end: 20160508
  2. TAPAZOLE [Suspect]
     Active Substance: METHIMAZOLE
     Dosage: 2 DF, QD
     Route: 048
     Dates: start: 20160310, end: 20160508
  3. TAPAZOLE [Suspect]
     Active Substance: METHIMAZOLE
     Dosage: 3 DF, QD
     Route: 048
     Dates: start: 201511
  4. TACHIPIRINA [Suspect]
     Active Substance: ACETAMINOPHEN
     Indication: PYREXIA
     Dosage: 1 G, QD
     Route: 048
     Dates: start: 20160502
  5. HUMALOG [Suspect]
     Active Substance: INSULIN LISPRO
     Indication: GESTATIONAL DIABETES
     Dosage: 8 IU, QD
     Route: 058
     Dates: start: 20160302, end: 20160508
  6. TAPAZOLE [Suspect]
     Active Substance: METHIMAZOLE
     Indication: BASEDOW^S DISEASE
     Dosage: 4 DF, QD
     Route: 048
     Dates: start: 20151104
  7. PROPYLTHIOURACIL. [Concomitant]
     Active Substance: PROPYLTHIOURACIL
     Indication: BASEDOW^S DISEASE
     Dosage: UNK
     Dates: start: 201510

REACTIONS (6)
  - Hepatic necrosis [Recovered/Resolved]
  - Acute hepatic failure [Recovered/Resolved]
  - Exposure during pregnancy [Recovered/Resolved]
  - Coagulopathy [Recovering/Resolving]
  - Rash maculo-papular [Recovering/Resolving]
  - Pyrexia [Recovering/Resolving]

NARRATIVE: CASE EVENT DATE: 20160302
